FAERS Safety Report 10553588 (Version 1)
Quarter: 2014Q4

REPORT INFORMATION
  Report Type: Spontaneous
  Country: IT (occurrence: IT)
  Receive Date: 20141030
  Receipt Date: 20141030
  Transmission Date: 20150529
  Serious: Yes (Hospitalization, Other)
  Sender: FDA-Public Use
  Company Number: IT-UCBSA-2014016850

PATIENT
  Age: 79 Year
  Sex: Female

DRUGS (12)
  1. TRITTICO [Suspect]
     Active Substance: TRAZODONE HYDROCHLORIDE
     Indication: COGNITIVE DISORDER
     Dosage: 15 GTT, ONCE DAILY (QD) (15 DROPS ONCE DAILY)
     Route: 048
  2. ACTRAPID [Concomitant]
     Active Substance: INSULIN HUMAN
     Indication: DIABETIC METABOLIC DECOMPENSATION
     Dosage: UNK
  3. LANOXIN [Suspect]
     Active Substance: DIGOXIN
     Indication: CARDIOMYOPATHY
  4. BISOPROLOL HEMIFUMARATE [Suspect]
     Active Substance: BISOPROLOL FUMARATE
     Indication: ATRIAL FIBRILLATION
     Dosage: 2.5 MG, ONCE DAILY (QD)
     Route: 048
  5. KEPPRA [Suspect]
     Active Substance: LEVETIRACETAM
     Indication: POST-TRAUMATIC EPILEPSY
     Dosage: 1000 MG, ONCE DAILY (QD)
     Route: 048
  6. DIAMICRON [Suspect]
     Active Substance: GLICLAZIDE
     Indication: DIABETES MELLITUS
     Dosage: 30 MG, ONCE DAILY (QD)
     Route: 048
  7. TRIATEC [Suspect]
     Active Substance: RAMIPRIL
     Indication: HYPERTENSION
     Dosage: 2.5 MG, ONCE DAILY (QD)
     Route: 048
  8. LANSOX [Suspect]
     Active Substance: LANSOPRAZOLE
     Indication: GASTRITIS
     Dosage: 30 MG, ONCE DAILY (QD)
     Route: 048
  9. LANOXIN [Suspect]
     Active Substance: DIGOXIN
     Indication: ATRIAL FIBRILLATION
     Dosage: 0.5 MG, ONCE DAILY (QD)
     Route: 042
     Dates: start: 20141001, end: 20141001
  10. SEREUPIN [Suspect]
     Active Substance: PAROXETINE HYDROCHLORIDE
     Indication: DEPRESSED MOOD
     Dosage: 20 MG, ONCE DAILY (QD)
  11. LASIX [Suspect]
     Active Substance: FUROSEMIDE
     Indication: CARDIAC DISORDER
     Dosage: 25 MG, ONCE DAILY (QD)
     Route: 048
  12. SODIUM CHLORIDE. [Suspect]
     Active Substance: SODIUM CHLORIDE
     Indication: PRODUCT USED FOR UNKNOWN INDICATION
     Dosage: 500 CC UNKNOWN FREQUENCY
     Route: 042

REACTIONS (7)
  - Malaise [Recovering/Resolving]
  - Inappropriate schedule of drug administration [Unknown]
  - Diabetic metabolic decompensation [Recovering/Resolving]
  - Atrial fibrillation [Recovering/Resolving]
  - Cardioactive drug level increased [Recovering/Resolving]
  - Fatigue [Recovering/Resolving]
  - Bradyphrenia [Recovering/Resolving]

NARRATIVE: CASE EVENT DATE: 20141001
